FAERS Safety Report 4813606-2 (Version None)
Quarter: 2005Q4

REPORT INFORMATION
  Report Type: 
  Country: None (occurrence: None)
  Receive Date: 20051028
  Receipt Date: 20050302
  Transmission Date: 20060501
  Serious: No
  Sender: FDA-Public Use
  Company Number: US-GLAXOSMITHKLINE-A0547978A

PATIENT
  Sex: Male

DRUGS (3)
  1. ADVAIR DISKUS 100/50 [Suspect]
     Indication: CHRONIC OBSTRUCTIVE PULMONARY DISEASE
     Dosage: 1PUFF TWICE PER DAY
     Route: 055
     Dates: start: 20030101
  2. SINGULAIR [Concomitant]
  3. VITAMINS [Concomitant]

REACTIONS (6)
  - DRY MOUTH [None]
  - DYSPHONIA [None]
  - GLOSSODYNIA [None]
  - INSOMNIA [None]
  - MYALGIA [None]
  - PARAESTHESIA [None]
